FAERS Safety Report 5746339-9 (Version None)
Quarter: 2008Q2

REPORT INFORMATION
  Report Type: 
  Country: None (occurrence: None)
  Receive Date: 20080522
  Receipt Date: 20080513
  Transmission Date: 20081010
  Serious: Yes (Other)
  Sender: FDA-Public Use
  Company Number: PHHY2008BE07822

PATIENT
  Age: 6 Year
  Sex: Female

DRUGS (4)
  1. TEGRETOL [Suspect]
     Indication: EPILEPSY
  2. TRILEPTAL [Suspect]
     Indication: EPILEPSY
  3. LAMICTAL [Concomitant]
  4. FRISIUM [Concomitant]

REACTIONS (2)
  - DRUG INEFFECTIVE [None]
  - SURGERY [None]
